FAERS Safety Report 16493459 (Version 2)
Quarter: 2019Q3

REPORT INFORMATION
  Report Type: Spontaneous
  Country: CH (occurrence: CH)
  Receive Date: 20190628
  Receipt Date: 20190704
  Transmission Date: 20191004
  Serious: Yes (Hospitalization, Disabling, Other)
  Sender: FDA-Public Use
  Company Number: CH-MYLANLABS-2019M1059189

PATIENT
  Age: 79 Year
  Sex: Male

DRUGS (10)
  1. AVALOX [Concomitant]
     Active Substance: MOXIFLOXACIN HYDROCHLORIDE
     Indication: PNEUMONIA
     Dosage: 400 MILLIGRAM, QD (0-1-0-0)
     Route: 048
     Dates: start: 20190609
  2. QUETIAPIN SANDOZ [Concomitant]
     Active Substance: QUETIAPINE
     Indication: DELIRIUM
     Dosage: 25 MILLIGRAM, QD (0-0-0-1)
     Route: 048
     Dates: start: 20190607
  3. KLACID 500 MG - FILMTABLETTEN [Suspect]
     Active Substance: CLARITHROMYCIN
     Indication: PNEUMONIA LEGIONELLA
     Dosage: 500 MILLIGRAM, BID (TBL. 500 MG, 1-0-1, FROM 05/06 TO 08/06/2019 INCLUSIVE (INDICATION: PNE)
     Route: 048
     Dates: start: 20190605, end: 20190608
  4. DAFALGAN [Concomitant]
     Active Substance: ACETAMINOPHEN
     Indication: PAIN
     Dosage: 500 MILLIGRAM, QID (1-1-1-1)
     Route: 048
  5. METOPROLOL MEPHA ZOK [Concomitant]
     Active Substance: METOPROLOL SUCCINATE
     Indication: CORONARY ARTERY DISEASE
     Dosage: 50 MILLIGRAM, QD (1-0-0-0)
     Route: 048
     Dates: start: 20190605
  6. AMLODIPINE [Concomitant]
     Active Substance: AMLODIPINE BESYLATE
     Indication: HYPERTENSION
     Dosage: 5 MILLIGRAM, QD (1-0-0-0)
     Route: 048
  7. DEPAKINE                           /00228501/ [Concomitant]
     Active Substance: VALPROIC ACID
     Indication: EPILEPSY
     Dosage: 500 MILLIGRAM, BID (2-0-0-0)
     Route: 048
  8. ROCEPHIN [Concomitant]
     Active Substance: CEFTRIAXONE SODIUM
     Indication: PNEUMONIA
     Dosage: 2 GRAM, QD
     Route: 042
     Dates: start: 20190605, end: 20190608
  9. SOLMUCOL [Concomitant]
     Active Substance: ACETYLCYSTEINE
     Indication: COUGH
     Dosage: 600 MILLIGRAM, QD (1-0-0-0)
     Route: 048
  10. XARELTO [Interacting]
     Active Substance: RIVAROXABAN
     Indication: ATRIAL FIBRILLATION
     Dosage: 20 MILLIGRAM, QD (TBL. 20 MG, ONCE DAILY SINCE 26/01/2019, PAUSED ON 10/ AND 11/0)
     Route: 048
     Dates: start: 20190126

REACTIONS (2)
  - Drug interaction [Unknown]
  - Vitreous haemorrhage [Not Recovered/Not Resolved]

NARRATIVE: CASE EVENT DATE: 20190608
